FAERS Safety Report 11099293 (Version 1)
Quarter: 2015Q2

REPORT INFORMATION
  Report Type: Spontaneous
  Country: IT (occurrence: None)
  Receive Date: 20150506
  Receipt Date: 20150506
  Transmission Date: 20150821
  Serious: Yes (Hospitalization)
  Sender: FDA-Public Use
  Company Number: 2015PL000064

PATIENT
  Age: 63 Year
  Sex: Female

DRUGS (4)
  1. ASPIRIN. [Concomitant]
     Active Substance: ASPIRIN
  2. ATENOLOL (ATENOLOL) [Concomitant]
     Active Substance: ATENOLOL
  3. RAMIPRIL (RAMIPRIL) [Concomitant]
     Active Substance: RAMIPRIL
  4. ALLOPURINOL (ALLOPURINOL) TABLET [Suspect]
     Active Substance: ALLOPURINOL
     Indication: PRODUCT USED FOR UNKNOWN INDICATION

REACTIONS (1)
  - Drug reaction with eosinophilia and systemic symptoms [None]
